FAERS Safety Report 25524279 (Version 1)
Quarter: 2025Q3

REPORT INFORMATION
  Report Type: Spontaneous
  Country: JP (occurrence: JP)
  Receive Date: 20250707
  Receipt Date: 20250707
  Transmission Date: 20251020
  Serious: Yes (Life-Threatening, Hospitalization, Other)
  Sender: UNICHEM
  Company Number: JP-UNICHEM LABORATORIES LIMITED-UNI-2025-JP-002643

PATIENT

DRUGS (2)
  1. BACLOFEN [Suspect]
     Active Substance: BACLOFEN
     Indication: Hiccups
     Route: 065
  2. CHLORPROMAZINE [Concomitant]
     Active Substance: CHLORPROMAZINE
     Indication: Hiccups
     Route: 065

REACTIONS (6)
  - Toxicity to various agents [Unknown]
  - Depressed level of consciousness [Recovering/Resolving]
  - Renal impairment [Recovering/Resolving]
  - Dyskinesia [Recovering/Resolving]
  - Thrombocytopenia [Recovering/Resolving]
  - Vomiting [Recovering/Resolving]
